FAERS Safety Report 25099883 (Version 1)
Quarter: 2025Q1

REPORT INFORMATION
  Report Type: Spontaneous
  Country: CA (occurrence: CA)
  Receive Date: 20250320
  Receipt Date: 20250320
  Transmission Date: 20250408
  Serious: Yes (Hospitalization, Other)
  Sender: SANDOZ
  Company Number: CA-002147023-NVSC2025CA046078

PATIENT
  Age: 76 Year
  Sex: Male

DRUGS (13)
  1. CITALOPRAM HYDROBROMIDE [Suspect]
     Active Substance: CITALOPRAM HYDROBROMIDE
     Indication: Dementia with Lewy bodies
     Dosage: 20 MG, QD
     Route: 065
  2. CLONAZEPAM [Suspect]
     Active Substance: CLONAZEPAM
     Indication: Dementia with Lewy bodies
     Dosage: 0.5 MG, QD
     Route: 065
  3. LORAZEPAM [Suspect]
     Active Substance: LORAZEPAM
     Indication: Dementia with Lewy bodies
     Route: 065
  4. LOXAPINE SUCCINATE [Suspect]
     Active Substance: LOXAPINE SUCCINATE
     Indication: Dementia with Lewy bodies
     Route: 065
  5. OLANZAPINE [Suspect]
     Active Substance: OLANZAPINE
     Indication: Post-traumatic stress disorder
     Dosage: 2.5 MG, QD
     Route: 065
  6. OLANZAPINE [Suspect]
     Active Substance: OLANZAPINE
     Indication: Dementia
     Route: 065
  7. QUETIAPINE [Suspect]
     Active Substance: QUETIAPINE
     Dosage: 12.5 MG, QD
     Route: 048
  8. QUETIAPINE [Suspect]
     Active Substance: QUETIAPINE
     Dosage: 12.5 MG, Q8H
     Route: 048
  9. QUETIAPINE [Suspect]
     Active Substance: QUETIAPINE
     Indication: Post-traumatic stress disorder
     Route: 048
  10. QUETIAPINE [Suspect]
     Active Substance: QUETIAPINE
     Indication: Dementia with Lewy bodies
     Route: 048
  11. RISPERIDONE [Suspect]
     Active Substance: RISPERIDONE
     Indication: Post-traumatic stress disorder
     Route: 065
  12. RISPERIDONE [Suspect]
     Active Substance: RISPERIDONE
     Indication: Dementia
     Dosage: 2.5 MG, BID
     Route: 065
  13. RIVASTIGMINE [Suspect]
     Active Substance: RIVASTIGMINE
     Indication: Dementia with Lewy bodies
     Route: 065

REACTIONS (2)
  - Parkinsonism [Unknown]
  - Off label use [Unknown]
